FAERS Safety Report 6007215-X (Version None)
Quarter: 2008Q4

REPORT INFORMATION
  Report Type: 
  Country: None (occurrence: None)
  Receive Date: 20081217
  Receipt Date: 20080214
  Transmission Date: 20090506
  Serious: No
  Sender: FDA-Public Use
  Company Number: US-ASTRAZENECA-2008UW03121

PATIENT
  Age: 73 Year
  Sex: Female
  Weight: 47.6 kg

DRUGS (2)
  1. CRESTOR [Suspect]
     Indication: BLOOD CHOLESTEROL INCREASED
     Route: 048
     Dates: start: 20080101
  2. SYNTHROID [Concomitant]

REACTIONS (1)
  - ABDOMINAL PAIN UPPER [None]
